FAERS Safety Report 17266074 (Version 5)
Quarter: 2020Q2

REPORT INFORMATION
  Report Type: Report from Study
  Country: FR (occurrence: FR)
  Receive Date: 20200114
  Receipt Date: 20200528
  Transmission Date: 20200713
  Serious: Yes (Death, Hospitalization, Other)
  Sender: FDA-Public Use
  Company Number: FR-GLAXOSMITHKLINE-FR2019TSO235691

PATIENT
  Age: 71 Year
  Sex: Male

DRUGS (14)
  1. NIRAPARIB [Suspect]
     Active Substance: NIRAPARIB
     Dosage: 200 MG, QD
     Route: 048
     Dates: start: 20191218
  2. TRAMADOL. [Concomitant]
     Active Substance: TRAMADOL
     Indication: PAIN
     Dosage: 150 MG (2 IN 1 D)
     Route: 048
     Dates: start: 20191115, end: 20191209
  3. IRON [Concomitant]
     Active Substance: IRON
     Indication: ANAEMIA
     Dosage: 300 MG
     Route: 042
     Dates: start: 20191203, end: 20191203
  4. NIRAPARIB [Suspect]
     Active Substance: NIRAPARIB
     Indication: TRANSITIONAL CELL CARCINOMA
     Dosage: UNK
     Route: 048
     Dates: start: 20191203
  5. ATEZOLIZUMAB. [Suspect]
     Active Substance: ATEZOLIZUMAB
     Indication: TRANSITIONAL CELL CARCINOMA
     Dosage: 1200 MG, Z (ONCE IN 3  WEEKS)
     Route: 042
     Dates: start: 20191203, end: 20191203
  6. TRAMADOL. [Concomitant]
     Active Substance: TRAMADOL
     Dosage: 200 MG (2 IN 1 D)
     Route: 048
     Dates: start: 20191210, end: 20191217
  7. ACUPAN [Concomitant]
     Active Substance: NEFOPAM HYDROCHLORIDE
     Indication: HAEMATURIA
     Dosage: 1 AMPULE (1 IN 1 D)
     Route: 048
     Dates: start: 20191203
  8. PARACETAMOL [Concomitant]
     Active Substance: ACETAMINOPHEN
     Indication: PAIN
     Dosage: 1 G, QD
     Route: 048
  9. PRIMPERAN [Concomitant]
     Active Substance: METOCLOPRAMIDE HYDROCHLORIDE
     Indication: NAUSEA
     Dosage: 10 MG (3 IN 1 D)
     Route: 048
     Dates: start: 20191203
  10. AUGMENTIN [Concomitant]
     Active Substance: AMOXICILLIN\CLAVULANATE POTASSIUM
     Dosage: UNK
     Route: 042
     Dates: start: 20191223, end: 20191223
  11. RAMPIRIL [Concomitant]
     Active Substance: RAMIPRIL
     Indication: HYPERTENSION
     Dosage: 1 TABLET (1 IN 1 D)
     Route: 048
  12. SIMVASTATINE [Concomitant]
     Active Substance: SIMVASTATIN
     Indication: HYPERCHOLESTEROLAEMIA
     Dosage: 1 DF, QD
     Route: 048
     Dates: start: 20191217
  13. SILVER [Concomitant]
     Active Substance: SILVER
     Indication: ANAEMIA
     Dosage: 50 MG
     Route: 042
     Dates: start: 20191203, end: 20191203
  14. ATEZOLIZUMAB. [Suspect]
     Active Substance: ATEZOLIZUMAB
     Dosage: 1200 MG, 1 IN 3 WK
     Route: 042
     Dates: start: 20191203, end: 20191203

REACTIONS (3)
  - Sepsis [Fatal]
  - Acute kidney injury [Unknown]
  - Platelet count decreased [Unknown]

NARRATIVE: CASE EVENT DATE: 20191217
